FAERS Safety Report 4494706-6 (Version None)
Quarter: 2004Q4

REPORT INFORMATION
  Report Type: 
  Country: None (occurrence: None)
  Receive Date: 20041103
  Receipt Date: 20041018
  Transmission Date: 20050328
  Serious: Yes (Death)
  Sender: FDA-Public Use
  Company Number: 2004-BP-10173RO

PATIENT
  Age: 22 Year

DRUGS (2)
  1. METHADONE HCL [Suspect]
  2. COCAINE HCL TOPICAL SOLUTION, 10 % (COCAINE) [Suspect]

REACTIONS (4)
  - ASPIRATION [None]
  - CARDIO-RESPIRATORY ARREST [None]
  - COMPLETED SUICIDE [None]
  - MULTIPLE DRUG OVERDOSE [None]
